FAERS Safety Report 6561730-9 (Version None)
Quarter: 2010Q1

REPORT INFORMATION
  Report Type: 
  Country: None (occurrence: None)
  Receive Date: 20100130
  Receipt Date: 20091028
  Transmission Date: 20100710
  Serious: No
  Sender: FDA-Public Use
  Company Number: US-ABBOTT-09P-163-0605651-00

PATIENT
  Sex: Male
  Weight: 39.498 kg

DRUGS (5)
  1. HUMIRA [Suspect]
     Indication: CROHN'S DISEASE
     Dates: start: 20090522
  2. HUMIRA [Suspect]
     Route: 050
     Dates: start: 20090522, end: 20091001
  3. HUMIRA [Suspect]
     Route: 050
     Dates: start: 20091001
  4. MERCAPTOPURINE [Concomitant]
     Indication: DRUG USE FOR UNKNOWN INDICATION
  5. MERCAPTOPURINE [Concomitant]

REACTIONS (6)
  - COUGH [None]
  - DRUG INEFFECTIVE [None]
  - HEADACHE [None]
  - NASAL CONGESTION [None]
  - NO THERAPEUTIC RESPONSE [None]
  - PYREXIA [None]
